FAERS Safety Report 5886985-5 (Version None)
Quarter: 2008Q3

REPORT INFORMATION
  Report Type: 
  Country: None (occurrence: None)
  Receive Date: 20080917
  Receipt Date: 20080911
  Transmission Date: 20090109
  Serious: Yes (Other)
  Sender: FDA-Public Use
  Company Number: US-ROXANE LABORATORIES, INC.-2008-RO-00023RO

PATIENT
  Age: 33 Year
  Sex: Male

DRUGS (5)
  1. PREDNISONE TAB [Suspect]
     Indication: RENAL DISORDER
     Dosage: 40MG
     Route: 048
  2. ETOPOSIDE [Concomitant]
     Indication: MYCOSIS FUNGOIDES
  3. DOXORUBICIN HCL [Concomitant]
     Indication: MYCOSIS FUNGOIDES
  4. VINCRISTINE [Concomitant]
     Indication: MYCOSIS FUNGOIDES
  5. CYCLOPHOSPHAMIDE [Concomitant]
     Indication: MYCOSIS FUNGOIDES

REACTIONS (3)
  - MYCOSIS FUNGOIDES [None]
  - NEOPLASM MALIGNANT [None]
  - NORMOCHROMIC NORMOCYTIC ANAEMIA [None]
